FAERS Safety Report 4427224-1 (Version None)
Quarter: 2004Q3

REPORT INFORMATION
  Report Type: 
  Country: None (occurrence: None)
  Receive Date: 20040817
  Receipt Date: 20040805
  Transmission Date: 20050211
  Serious: Yes (Other)
  Sender: FDA-Public Use
  Company Number: US-JNJFOC-20040802658

PATIENT
  Sex: Male
  Weight: 56.25 kg

DRUGS (10)
  1. REMICADE [Suspect]
     Route: 042
  2. REMICADE [Suspect]
     Route: 042
  3. REMICADE [Suspect]
     Route: 042
  4. REMICADE [Suspect]
     Indication: CROHN'S DISEASE
     Route: 042
  5. PENTASA [Concomitant]
     Indication: CROHN'S DISEASE
  6. BENTYL [Concomitant]
  7. GLYSET [Concomitant]
     Indication: BLOOD GLUCOSE FLUCTUATION
  8. PRIMIDONE [Concomitant]
     Indication: TREMOR
  9. PROPRANOLOL [Concomitant]
  10. LEXAPRO [Concomitant]
     Indication: ANXIETY

REACTIONS (7)
  - ASTHENIA [None]
  - BALANCE DISORDER [None]
  - BLOOD GLUCOSE FLUCTUATION [None]
  - DEHYDRATION [None]
  - DIFFICULTY IN WALKING [None]
  - FALL [None]
  - MEDICATION ERROR [None]
